FAERS Safety Report 5949957-8 (Version None)
Quarter: 2008Q4

REPORT INFORMATION
  Report Type: 
  Country: None (occurrence: None)
  Receive Date: 20081112
  Receipt Date: 20081105
  Transmission Date: 20090506
  Serious: Yes (Hospitalization)
  Sender: FDA-Public Use
  Company Number: US-JNJFOC-20081102077

PATIENT
  Sex: Male
  Weight: 149.69 kg

DRUGS (8)
  1. DURAGESIC-100 [Suspect]
     Indication: Q FEVER
     Route: 062
  2. AMBIEN [Concomitant]
     Indication: SLEEP DISORDER THERAPY
     Route: 048
  3. DOXYCYCLINE [Concomitant]
     Indication: INFECTION
     Route: 048
  4. FLOMAX [Concomitant]
     Indication: PROSTATIC DISORDER
     Route: 048
  5. CIPRO [Concomitant]
     Indication: INFECTION
     Route: 048
  6. PEPCID [Concomitant]
     Indication: GASTRIC DISORDER
     Route: 048
  7. PERCOCET [Concomitant]
     Indication: PAIN
     Route: 048
  8. PHENERGAN HCL [Concomitant]
     Route: 048

REACTIONS (13)
  - AGGRESSION [None]
  - BLOOD CHOLESTEROL INCREASED [None]
  - CONVULSION [None]
  - DEPRESSION [None]
  - DIABETES MELLITUS [None]
  - DISORIENTATION [None]
  - FIBROMYALGIA [None]
  - GASTRIC DISORDER [None]
  - HYPERTENSION [None]
  - LOSS OF CONSCIOUSNESS [None]
  - OFF LABEL USE [None]
  - PAIN [None]
  - WRONG TECHNIQUE IN DRUG USAGE PROCESS [None]
